FAERS Safety Report 18843426 (Version 1)
Quarter: 2021Q1

REPORT INFORMATION
  Report Type: Spontaneous
  Country: US (occurrence: US)
  Receive Date: 20210203
  Receipt Date: 20210203
  Transmission Date: 20210419
  Serious: Yes (Hospitalization)
  Sender: FDA-Public Use
  Company Number: None

PATIENT
  Age: 66 Year
  Sex: Male

DRUGS (1)
  1. LOSARTAN (LOSARTAN POTASSIUM 100MG TAB) [Suspect]
     Active Substance: LOSARTAN POTASSIUM
     Indication: HYPERTENSION
     Dates: start: 20200602, end: 20200902

REACTIONS (4)
  - Angioedema [None]
  - Rash [None]
  - Chest pain [None]
  - Angina pectoris [None]

NARRATIVE: CASE EVENT DATE: 20200902
